FAERS Safety Report 23864881 (Version 6)
Quarter: 2024Q3

REPORT INFORMATION
  Report Type: Report from Study
  Country: AE (occurrence: AE)
  Receive Date: 20240516
  Receipt Date: 20240704
  Transmission Date: 20241017
  Serious: Yes (Hospitalization)
  Sender: JOHNSON AND JOHNSON
  Company Number: AE-JNJFOC-20240526835

PATIENT
  Age: 41 Year
  Sex: Male

DRUGS (2)
  1. SELEXIPAG [Suspect]
     Active Substance: SELEXIPAG
     Indication: Pulmonary arterial hypertension
     Route: 048
     Dates: start: 20230622, end: 20240131
  2. OPSUMIT [Suspect]
     Active Substance: MACITENTAN
     Indication: Pulmonary arterial hypertension
     Route: 048
     Dates: start: 20230622, end: 20240131

REACTIONS (7)
  - Pulmonary arterial pressure increased [Unknown]
  - Right ventricular dysfunction [Unknown]
  - Right ventricular hypertrophy [Unknown]
  - Haemoptysis [Unknown]
  - Oxygen saturation decreased [Unknown]
  - Fluid retention [Unknown]
  - Rash [Unknown]

NARRATIVE: CASE EVENT DATE: 20240505
